FAERS Safety Report 19971792 (Version 2)
Quarter: 2022Q1

REPORT INFORMATION
  Report Type: Spontaneous
  Country: JP (occurrence: JP)
  Receive Date: 20211020
  Receipt Date: 20220302
  Transmission Date: 20220424
  Serious: Yes (Other)
  Sender: FDA-Public Use
  Company Number: JP-UCBJ-CD202108176UCBPHAPROD

PATIENT
  Age: 8 Year
  Sex: Male

DRUGS (1)
  1. VIMPAT [Suspect]
     Active Substance: LACOSAMIDE
     Indication: Epilepsy
     Dosage: 150MG DAILY
     Route: 048

REACTIONS (2)
  - Petit mal epilepsy [Recovered/Resolved]
  - Change in seizure presentation [Unknown]
